FAERS Safety Report 17302887 (Version 1)
Quarter: 2020Q1

REPORT INFORMATION
  Report Type: Spontaneous
  Country: US (occurrence: US)
  Receive Date: 20200122
  Receipt Date: 20200122
  Transmission Date: 20200409
  Serious: No
  Sender: FDA-Public Use
  Company Number: US-ENDO PHARMACEUTICALS INC-2019-104437

PATIENT
  Age: 30 Year
  Sex: Male

DRUGS (3)
  1. ENDOCET [Suspect]
     Active Substance: ACETAMINOPHEN\OXYCODONE HYDROCHLORIDE
     Indication: BREAKTHROUGH PAIN
     Dosage: 1 DF, DAILY
     Route: 065
  2. NAPROXEN. [Concomitant]
     Active Substance: NAPROXEN
     Indication: PRODUCT USED FOR UNKNOWN INDICATION
     Dosage: UNK
     Route: 065
  3. ENDOCET [Suspect]
     Active Substance: ACETAMINOPHEN\OXYCODONE HYDROCHLORIDE
     Indication: SPINAL STENOSIS
     Dosage: 1 DF, BID PRN
     Route: 065

REACTIONS (4)
  - Intentional product use issue [Unknown]
  - Therapeutic product effect decreased [Unknown]
  - Product dose omission [Unknown]
  - Abdominal symptom [Unknown]

NARRATIVE: CASE EVENT DATE: 2019
